FAERS Safety Report 7339500-3 (Version None)
Quarter: 2011Q1

REPORT INFORMATION
  Report Type: 
  Country: None (occurrence: None)
  Receive Date: 20110308
  Receipt Date: 20110118
  Transmission Date: 20110831
  Serious: Yes (Hospitalization)
  Sender: FDA-Public Use
  Company Number: US-AMGEN-USASP2011003316

PATIENT
  Sex: Female

DRUGS (3)
  1. CALCIUM [Concomitant]
  2. VITAMIN A [Concomitant]
  3. PROLIA [Suspect]
     Indication: OSTEOPOROSIS POSTMENOPAUSAL
     Dates: start: 20101230

REACTIONS (1)
  - HYPOCALCAEMIA [None]
